FAERS Safety Report 7984587-8 (Version None)
Quarter: 2011Q4

REPORT INFORMATION
  Report Type: 
  Country: None (occurrence: None)
  Receive Date: 20111216
  Receipt Date: 20111214
  Transmission Date: 20120403
  Serious: Yes (Other)
  Sender: FDA-Public Use
  Company Number: US-BAYER-2011-120511

PATIENT
  Sex: Male

DRUGS (5)
  1. NEXAVAR [Suspect]
     Indication: HEPATIC NEOPLASM MALIGNANT
     Dosage: 400 MG, BID
     Route: 048
     Dates: start: 20111204
  2. ANALGESICS [Concomitant]
  3. LACTULOSE [Concomitant]
  4. CARAFATE [Concomitant]
  5. DIURETICS [Concomitant]

REACTIONS (6)
  - EPISTAXIS [None]
  - RASH PRURITIC [None]
  - MASS [None]
  - AMMONIA INCREASED [None]
  - ACNE [None]
  - CHROMATURIA [None]
